FAERS Safety Report 5449223-3 (Version None)
Quarter: 2007Q3

REPORT INFORMATION
  Report Type: 
  Country: None (occurrence: None)
  Receive Date: 20070911
  Receipt Date: 20070831
  Transmission Date: 20080115
  Serious: Yes (Other)
  Sender: FDA-Public Use
  Company Number: HQWYE702002AUG04

PATIENT
  Sex: Female

DRUGS (3)
  1. PREMPHASE 14/14 [Suspect]
  2. PROVERA [Suspect]
  3. OGEN [Suspect]

REACTIONS (1)
  - BREAST CANCER METASTATIC [None]
